FAERS Safety Report 11315589 (Version 1)
Quarter: 2015Q3

REPORT INFORMATION
  Report Type: Spontaneous
  Country: US (occurrence: US)
  Receive Date: 20150728
  Receipt Date: 20150728
  Transmission Date: 20151125
  Serious: Yes (Other)
  Sender: FDA-Public Use
  Company Number: US-ASTRAZENECA-2015SE70857

PATIENT
  Sex: Female

DRUGS (1)
  1. BYDUREON [Suspect]
     Active Substance: EXENATIDE
     Route: 058
     Dates: start: 201507

REACTIONS (8)
  - Diverticulitis [Unknown]
  - Myalgia [Unknown]
  - Injection site mass [Unknown]
  - Injection site pain [Unknown]
  - Abdominal pain [Unknown]
  - Injection site pain [Unknown]
  - Diarrhoea [Unknown]
  - Appendicitis [Unknown]

NARRATIVE: CASE EVENT DATE: 20150720
